FAERS Safety Report 7972579-4 (Version None)
Quarter: 2011Q4

REPORT INFORMATION
  Report Type: 
  Country: None (occurrence: None)
  Receive Date: 20111209
  Receipt Date: 20111124
  Transmission Date: 20120403
  Serious: Yes (Other)
  Sender: FDA-Public Use
  Company Number: 010793

PATIENT
  Age: 66 Year
  Sex: Female

DRUGS (1)
  1. SAMSCA [Suspect]
     Dosage: 15 MG, ORAL
     Route: 048

REACTIONS (2)
  - RAPID CORRECTION OF HYPONATRAEMIA [None]
  - OSMOTIC DEMYELINATION SYNDROME [None]
